FAERS Safety Report 6149956-X (Version None)
Quarter: 2009Q2

REPORT INFORMATION
  Report Type: 
  Country: None (occurrence: None)
  Receive Date: 20090409
  Receipt Date: 20090403
  Transmission Date: 20091009
  Serious: Yes (Hospitalization)
  Sender: FDA-Public Use
  Company Number: A0765766A

PATIENT
  Age: 50 Year
  Sex: Female
  Weight: 84.1 kg

DRUGS (4)
  1. AVANDIA [Suspect]
     Indication: INSULIN-REQUIRING TYPE 2 DIABETES MELLITUS
     Dosage: 4MG TWICE PER DAY
     Route: 048
     Dates: start: 20040601, end: 20070601
  2. VITAMINS [Concomitant]
  3. FISH OIL [Concomitant]
  4. CO Q 10 [Concomitant]

REACTIONS (5)
  - ANXIETY [None]
  - CARDIAC DISORDER [None]
  - DEPRESSION [None]
  - HEART INJURY [None]
  - MYOCARDIAL INFARCTION [None]
